FAERS Safety Report 4706280-7 (Version None)
Quarter: 2005Q3

REPORT INFORMATION
  Report Type: 
  Country: None (occurrence: None)
  Receive Date: 20050705
  Receipt Date: 20050107
  Transmission Date: 20060218
  Serious: Yes (Hospitalization, Disabling)
  Sender: FDA-Public Use
  Company Number: JP-SP-2005-00118

PATIENT
  Age: 73 Year
  Sex: Male

DRUGS (14)
  1. IMMUCYST [Suspect]
     Indication: BLADDER CANCER
     Route: 043
     Dates: start: 20040412, end: 20040527
  2. IMMUCYST [Suspect]
     Route: 043
     Dates: start: 20040412, end: 20040527
  3. IMMUCYST [Suspect]
     Route: 043
     Dates: start: 20040412, end: 20040527
  4. NAFTOPIDIL [Concomitant]
     Dosage: 50 MG/DAY
     Route: 048
     Dates: start: 20040301, end: 20040406
  5. CEFDINIR [Concomitant]
     Dosage: 3CAP/DAY
     Dates: start: 20040301, end: 20040304
  6. LEVOFLOXACIN [Concomitant]
     Route: 048
  7. TEPRENONE [Concomitant]
     Route: 048
  8. TAMSULOSIN HCL [Concomitant]
     Dosage: 0.2MG/DAY
     Route: 048
     Dates: start: 20040419
  9. CEFCAPENE PIVOXIL HYDROCHLORIDE [Concomitant]
     Route: 048
  10. FLAVOXATE HYDROCHLORIDE [Concomitant]
     Dosage: 600MG/DAY
     Route: 048
     Dates: start: 20040418
  11. LOXOPROFEN SODIUM [Concomitant]
     Dosage: 180MG/DAY
     Route: 048
     Dates: start: 20040523, end: 20040614
  12. IRSOGLADINE MALEATE [Concomitant]
     Route: 048
  13. DICLOFENAC SODIUM [Concomitant]
  14. LOXOPROFEN SODIUM [Concomitant]
     Route: 048
     Dates: start: 20041012

REACTIONS (10)
  - ANOREXIA [None]
  - BLADDER PAIN [None]
  - BLADDER STENOSIS [None]
  - DYSURIA [None]
  - FATIGUE [None]
  - HYPERTONIC BLADDER [None]
  - POLLAKIURIA [None]
  - TRANSURETHRAL BLADDER RESECTION [None]
  - URINARY BLADDER ATROPHY [None]
  - URINARY RETENTION [None]
